FAERS Safety Report 7535657-X (Version None)
Quarter: 2011Q2

REPORT INFORMATION
  Report Type: 
  Country: None (occurrence: None)
  Receive Date: 20110602
  Receipt Date: 20110504
  Transmission Date: 20111010
  Serious: Yes (Hospitalization, Other)
  Sender: FDA-Public Use
  Company Number: 2009SP024643

PATIENT
  Age: 29 Year
  Sex: Female
  Weight: 102.9665 kg

DRUGS (2)
  1. NUVARING [Suspect]
     Indication: CONTRACEPTION
     Dates: start: 20070601, end: 20070801
  2. NUVARING [Suspect]
     Indication: DYSMENORRHOEA
     Dates: start: 20070601, end: 20070801

REACTIONS (15)
  - ANOGENITAL DYSPLASIA [None]
  - DEEP VEIN THROMBOSIS [None]
  - BLOODY DISCHARGE [None]
  - BLOOD PRESSURE INCREASED [None]
  - PNEUMONIA [None]
  - DEPRESSION [None]
  - PULMONARY EMBOLISM [None]
  - ENDOMETRIAL HYPERTROPHY [None]
  - VULVOVAGINAL HUMAN PAPILLOMA VIRUS INFECTION [None]
  - UPPER RESPIRATORY TRACT INFECTION [None]
  - PELVIC PAIN [None]
  - BRONCHITIS [None]
  - DRUG EFFECT DECREASED [None]
  - NAUSEA [None]
  - OVARIAN CYST RUPTURED [None]
